FAERS Safety Report 18732426 (Version 1)
Quarter: 2021Q1

REPORT INFORMATION
  Report Type: Spontaneous
  Country: US (occurrence: US)
  Receive Date: 20210113
  Receipt Date: 20210113
  Transmission Date: 20210419
  Serious: No
  Sender: FDA-Public Use
  Company Number: US-CELGENEUS-USA-20210101472

PATIENT
  Age: 54 Year
  Sex: Female

DRUGS (2)
  1. ZEPOSIA [Suspect]
     Active Substance: OZANIMOD HYDROCHLORIDE
     Indication: PRODUCT USED FOR UNKNOWN INDICATION
     Dosage: .23 MILLIGRAM
     Route: 048
     Dates: start: 20201231, end: 20210102
  2. ZEPOSIA [Suspect]
     Active Substance: OZANIMOD HYDROCHLORIDE
     Dosage: .23 MILLIGRAM
     Route: 048
     Dates: start: 2021

REACTIONS (1)
  - Energy increased [Recovered/Resolved]

NARRATIVE: CASE EVENT DATE: 20201231
